FAERS Safety Report 5649926-1 (Version None)
Quarter: 2008Q1

REPORT INFORMATION
  Report Type: 
  Country: None (occurrence: None)
  Receive Date: 20080304
  Receipt Date: 20080227
  Transmission Date: 20080703
  Serious: Yes (Death, Life-Threatening)
  Sender: FDA-Public Use
  Company Number: DE-BAYER-200814028GPV

PATIENT
  Age: 36 Year
  Sex: Female

DRUGS (13)
  1. CIPRO [Suspect]
     Indication: KIDNEY INFECTION
     Dosage: UNIT DOSE: 250 MG
     Route: 048
     Dates: start: 20041110, end: 20041212
  2. DEXAMETHASONE [Suspect]
     Indication: LEUKAEMIA
     Dosage: UNIT DOSE: 4 MG
     Route: 042
     Dates: start: 20041110, end: 20041130
  3. VANCOMYCIN [Suspect]
     Indication: INFECTION PROPHYLAXIS
     Dosage: UNIT DOSE: 1 G
     Route: 042
     Dates: start: 20041114, end: 20041212
  4. ZOVIRAX [Suspect]
     Indication: ANTIVIRAL PROPHYLAXIS
     Dosage: UNIT DOSE: 400 MG
     Route: 042
     Dates: start: 20041110, end: 20041212
  5. TAZOBACTAM [Suspect]
     Indication: PROPHYLAXIS
     Dosage: UNIT DOSE: 4.5 G
     Route: 042
     Dates: start: 20041204, end: 20041207
  6. ITRACONARD [Suspect]
     Indication: CANDIDIASIS
     Dosage: UNIT DOSE: 200 MG
     Route: 042
     Dates: start: 20041206, end: 20041208
  7. ZINACEF [Concomitant]
     Indication: KIDNEY INFECTION
     Route: 042
     Dates: start: 20041113, end: 20041113
  8. CYCLOPHOSPHAMIDE [Concomitant]
     Indication: LEUKAEMIA
     Route: 042
     Dates: start: 20041110, end: 20071110
  9. CYCLOPHOSPHAMIDE [Concomitant]
     Route: 042
     Dates: start: 20041113, end: 20071113
  10. VINCRISTINE [Concomitant]
     Indication: LEUKAEMIA
     Route: 042
     Dates: start: 20041114, end: 20041114
  11. MERONEM [Concomitant]
     Indication: SEPSIS
     Route: 042
     Dates: start: 20041208, end: 20041212
  12. VFEND [Concomitant]
     Indication: CANDIDIASIS
     Route: 042
     Dates: start: 20041209
  13. CANCIDAS [Concomitant]
     Indication: CANDIDIASIS
     Route: 042
     Dates: start: 20041211, end: 20041211

REACTIONS (9)
  - BLISTER [None]
  - ERYTHEMA [None]
  - LIP EROSION [None]
  - NIKOLSKY'S SIGN [None]
  - ORAL MUCOSA EROSION [None]
  - PAIN OF SKIN [None]
  - PRURITUS [None]
  - STEVENS-JOHNSON SYNDROME [None]
  - TOXIC EPIDERMAL NECROLYSIS [None]
